FAERS Safety Report 13518062 (Version 1)
Quarter: 2017Q2

REPORT INFORMATION
  Report Type: Spontaneous
  Country: US (occurrence: US)
  Receive Date: 20170505
  Receipt Date: 20170505
  Transmission Date: 20170830
  Serious: No
  Sender: FDA-Public Use
  Company Number: US-GLAXOSMITHKLINE-US2017GSK065775

PATIENT
  Sex: Female
  Weight: 99.77 kg

DRUGS (3)
  1. VENTOLIN [Suspect]
     Active Substance: ALBUTEROL SULFATE
  2. ZANTAC [Suspect]
     Active Substance: RANITIDINE HYDROCHLORIDE
  3. ACIPHEX [Suspect]
     Active Substance: RABEPRAZOLE SODIUM

REACTIONS (1)
  - Drug hypersensitivity [Unknown]
